FAERS Safety Report 5366721-1 (Version None)
Quarter: 2007Q2

REPORT INFORMATION
  Report Type: 
  Country: None (occurrence: None)
  Receive Date: 20070622
  Receipt Date: 20060518
  Transmission Date: 20071010
  Serious: No
  Sender: FDA-Public Use
  Company Number: US-ASTRAZENECA-2006UW09769

PATIENT
  Age: 65 Year
  Sex: Female
  Weight: 51.3 kg

DRUGS (5)
  1. RHINOCORT [Suspect]
     Indication: POSTNASAL DRIP
     Route: 045
  2. ALBUTEROL [Concomitant]
  3. ADVAIR DISKUS 100/50 [Concomitant]
  4. ACCOLATE [Concomitant]
     Route: 048
  5. ARIMIDEX [Concomitant]
     Route: 048

REACTIONS (1)
  - FATIGUE [None]
